FAERS Safety Report 20853187 (Version 15)
Quarter: 2023Q2

REPORT INFORMATION
  Report Type: Spontaneous
  Country: CA (occurrence: CA)
  Receive Date: 20220520
  Receipt Date: 20230629
  Transmission Date: 20230721
  Serious: Yes (Hospitalization, Other)
  Sender: FDA-Public Use
  Company Number: CA-CELLTRION INC.-2022CA004562

PATIENT

DRUGS (17)
  1. INFLECTRA [Suspect]
     Active Substance: INFLIXIMAB-DYYB
     Indication: Crohn^s disease
     Dosage: 900 MG, WEEK 0,2,6 THEN EVERY 8 WEEKS
     Route: 042
     Dates: start: 20220318, end: 20220629
  2. INFLECTRA [Suspect]
     Active Substance: INFLIXIMAB-DYYB
     Dosage: 900 MG, WEEK 0,2,6 THEN EVERY 8 WEEKS
     Route: 042
     Dates: start: 20220404
  3. INFLECTRA [Suspect]
     Active Substance: INFLIXIMAB-DYYB
     Dosage: 900 MG, WEEK 0,2,6 THEN EVERY 8 WEEKS
     Route: 042
     Dates: start: 20220404
  4. INFLECTRA [Suspect]
     Active Substance: INFLIXIMAB-DYYB
     Dosage: 900 MG, WEEK 0,2,6 THEN EVERY 8 WEEKS
     Route: 042
     Dates: start: 20220504
  5. INFLECTRA [Suspect]
     Active Substance: INFLIXIMAB-DYYB
     Dosage: 900 MG, WEEK 0,2,6 THEN EVERY 8 WEEKS
     Route: 042
     Dates: start: 20220629
  6. INFLECTRA [Suspect]
     Active Substance: INFLIXIMAB-DYYB
     Dosage: 10 MG/KG, RE-INDUCTION PRESCRIBED
     Route: 042
  7. INFLECTRA [Suspect]
     Active Substance: INFLIXIMAB-DYYB
     Dosage: 10 MG/KG, INDUCTION WEEK 0,2,6 THEN Q 8 WEEKS
     Route: 042
     Dates: start: 20220817
  8. INFLECTRA [Suspect]
     Active Substance: INFLIXIMAB-DYYB
     Dosage: 10 MG/KG, INDUCTION WEEK 0,2,6 THEN Q 8 WEEKS
     Route: 042
     Dates: start: 20220817, end: 20230328
  9. INFLECTRA [Suspect]
     Active Substance: INFLIXIMAB-DYYB
     Dosage: 10 MG/KG, INDUCTION WEEK 0,2,6
     Route: 042
     Dates: start: 20220927
  10. INFLECTRA [Suspect]
     Active Substance: INFLIXIMAB-DYYB
     Dosage: 10 MG/KG, INDUCTION WEEK 0,2,6
     Route: 042
     Dates: start: 20220927
  11. INFLECTRA [Suspect]
     Active Substance: INFLIXIMAB-DYYB
     Dosage: 10 MG/KG, INDUCTION WEEK 0,2,6
     Route: 042
     Dates: start: 20221123
  12. INFLECTRA [Suspect]
     Active Substance: INFLIXIMAB-DYYB
     Dosage: 10 MG/KG Q 8 WEEK
     Route: 042
     Dates: start: 20230118
  13. INFLECTRA [Suspect]
     Active Substance: INFLIXIMAB-DYYB
     Dosage: 10 MG/KG Q 8 WEEK (920 MG, AFTER 10 WEEKS)
     Route: 042
     Dates: start: 20230328
  14. INFLECTRA [Suspect]
     Active Substance: INFLIXIMAB-DYYB
     Dosage: 1 DF, REINDUCTION DOSE UNKNOWN - DAY 0 AND AFTER 1 MONTH
     Route: 042
     Dates: start: 20230418, end: 20230518
  15. INFLECTRA [Suspect]
     Active Substance: INFLIXIMAB-DYYB
     Dosage: 10 MG/KG Q 8 WEEK
     Route: 042
     Dates: start: 20230518
  16. INFLECTRA [Suspect]
     Active Substance: INFLIXIMAB-DYYB
     Dosage: 10 MG/KG EVERY 4 WEEKS (910 MG, AFTER 4 WEEKS)
     Route: 042
     Dates: start: 20230620
  17. METHOTREXATE [Concomitant]
     Active Substance: METHOTREXATE
     Indication: Crohn^s disease
     Dosage: 1 DF, WEEKLY, DOSE NOT PROVIDED

REACTIONS (11)
  - Rectal abscess [Unknown]
  - Abscess limb [Recovered/Resolved]
  - Gastrointestinal disorder [Not Recovered/Not Resolved]
  - Drug effect less than expected [Unknown]
  - Arthralgia [Recovered/Resolved]
  - Skin irritation [Unknown]
  - Oedema peripheral [Not Recovered/Not Resolved]
  - Skin lesion [Not Recovered/Not Resolved]
  - Fistula [Unknown]
  - Off label use [Unknown]
  - Inappropriate schedule of product administration [Unknown]

NARRATIVE: CASE EVENT DATE: 20220101
